FAERS Safety Report 16458024 (Version 6)
Quarter: 2023Q1

REPORT INFORMATION
  Report Type: Spontaneous
  Country: US (occurrence: US)
  Receive Date: 20190620
  Receipt Date: 20230314
  Transmission Date: 20230417
  Serious: No
  Sender: FDA-Public Use
  Company Number: US-PFIZER INC-2019261118

PATIENT
  Age: 61 Year
  Sex: Female

DRUGS (4)
  1. SOMAVERT [Suspect]
     Active Substance: PEGVISOMANT
     Indication: Acromegaly
     Dosage: 10 MG, DAILY
     Route: 058
     Dates: start: 20200113
  2. SOMAVERT [Suspect]
     Active Substance: PEGVISOMANT
     Dosage: 20 MG
     Route: 058
  3. SOMAVERT [Suspect]
     Active Substance: PEGVISOMANT
     Dosage: 25 MG
     Route: 058
     Dates: end: 20200730
  4. SOMAVERT [Suspect]
     Active Substance: PEGVISOMANT
     Dosage: 25 MG, 1X/DAY

REACTIONS (3)
  - Intentional product misuse [Unknown]
  - Diarrhoea [Recovered/Resolved]
  - Arthralgia [Unknown]
